FAERS Safety Report 5636427-X (Version None)
Quarter: 2008Q1

REPORT INFORMATION
  Report Type: 
  Country: None (occurrence: None)
  Receive Date: 20080225
  Receipt Date: 20080128
  Transmission Date: 20080703
  Serious: No
  Sender: FDA-Public Use
  Company Number: A0703886A

PATIENT
  Sex: Female

DRUGS (2)
  1. VERAMYST [Suspect]
     Route: 045
  2. UNKNOWN [Concomitant]

REACTIONS (2)
  - ACCIDENTAL EXPOSURE [None]
  - EYE IRRITATION [None]
